FAERS Safety Report 7386495-2 (Version None)
Quarter: 2011Q1

REPORT INFORMATION
  Report Type: 
  Country: None (occurrence: None)
  Receive Date: 20110323
  Receipt Date: 20110308
  Transmission Date: 20110831
  Serious: Yes (Other)
  Sender: FDA-Public Use
  Company Number: 20110198

PATIENT
  Age: 58 Year
  Sex: Female

DRUGS (11)
  1. METHYLENE BLUE INJECTION, USP (METHYLENE BLUE) 1% [Suspect]
     Indication: PARATHYROIDECTOMY
     Dosage: 5 MG/KG OVER 1 HOUR, INTRAVENOUS
     Route: 042
  2. SEVOFLURANE [Concomitant]
  3. PAROXETINE [Concomitant]
  4. ROCURONIUM [Concomitant]
  5. SIMVASTATIN [Concomitant]
  6. NEOSTIGMINE [Concomitant]
  7. PROPOFOL [Concomitant]
  8. ATROPINE [Concomitant]
  9. FENTAMYL [Concomitant]
  10. OMEPRAZOLE [Concomitant]
  11. MIDAZOLAM [Concomitant]

REACTIONS (10)
  - MOVEMENT DISORDER [None]
  - DRUG INTERACTION [None]
  - HYPOTENSION [None]
  - UNRESPONSIVE TO STIMULI [None]
  - DISORIENTATION [None]
  - AGITATION [None]
  - EYE MOVEMENT DISORDER [None]
  - ANXIETY [None]
  - TACHYCARDIA [None]
  - FEAR [None]
